FAERS Safety Report 12486254 (Version 2)
Quarter: 2016Q2

REPORT INFORMATION
  Report Type: Spontaneous
  Country: GB (occurrence: GB)
  Receive Date: 20160621
  Receipt Date: 20160621
  Transmission Date: 20160815
  Serious: Yes (Congenital Anomaly)
  Sender: FDA-Public Use
  Company Number: GB-ACTAVIS-2016-12824

PATIENT
  Age: 5 Month
  Sex: Male

DRUGS (7)
  1. QUETIAPINE (UNKNOWN) [Suspect]
     Active Substance: QUETIAPINE
     Indication: PRODUCT USED FOR UNKNOWN INDICATION
     Dosage: 750 MG, UNKNOWN (AT CONCEPTION)
     Route: 064
  2. QUETIAPINE (UNKNOWN) [Suspect]
     Active Substance: QUETIAPINE
     Dosage: 350 MG, DAILY (150 MG MANE, 200 MG NOCTE - 12 WEEKS)
     Route: 064
  3. QUETIAPINE (UNKNOWN) [Suspect]
     Active Substance: QUETIAPINE
     Dosage: 300 MG, BID (27-36 WEEKS)
     Route: 064
  4. MIRTAZAPINE. [Concomitant]
     Active Substance: MIRTAZAPINE
     Indication: PRODUCT USED FOR UNKNOWN INDICATION
     Dosage: 45 MG, DAILY (STATES THIS WAS DISCONTINUED BEFORE CONCEPTION.)
     Route: 064
  5. CHLORPROMAZINE HYDROCHLORIDE (WATSON LABORATORIES) [Suspect]
     Active Substance: CHLORPROMAZINE HYDROCHLORIDE
     Indication: PRODUCT USED FOR UNKNOWN INDICATION
     Dosage: 25 MG, BID (AT CONCEPTION)
     Route: 064
  6. CHLORPROMAZINE HYDROCHLORIDE (WATSON LABORATORIES) [Suspect]
     Active Substance: CHLORPROMAZINE HYDROCHLORIDE
     Dosage: 25 MG, DAILY (BY 12 WEEKS)
     Route: 064
  7. QUETIAPINE (UNKNOWN) [Suspect]
     Active Substance: QUETIAPINE
     Dosage: 200 MG, BID (20 WEEKS)
     Route: 064

REACTIONS (3)
  - Neuroblastoma [Unknown]
  - Foetal exposure during pregnancy [Unknown]
  - Congenital cerebrovascular anomaly [Unknown]

NARRATIVE: CASE EVENT DATE: 20160218
